FAERS Safety Report 10227910 (Version 3)
Quarter: 2015Q4

REPORT INFORMATION
  Report Type: Report from Study
  Country: US (occurrence: US)
  Receive Date: 20140610
  Receipt Date: 20151015
  Transmission Date: 20160304
  Serious: Yes (Hospitalization)
  Sender: FDA-Public Use
  Company Number: US-ROCHE-1379439

PATIENT
  Age: 41 Year
  Sex: Female
  Weight: 111.68 kg

DRUGS (11)
  1. ACTEMRA [Suspect]
     Active Substance: TOCILIZUMAB
     Indication: RHEUMATOID ARTHRITIS
     Route: 042
     Dates: start: 20140220
  2. ACTEMRA [Suspect]
     Active Substance: TOCILIZUMAB
     Route: 042
     Dates: start: 20140320
  3. LOSARTAN. [Concomitant]
     Active Substance: LOSARTAN
  4. ACTEMRA [Suspect]
     Active Substance: TOCILIZUMAB
     Dosage: 901.8MG
     Route: 042
     Dates: start: 20140417
  5. ACTEMRA [Suspect]
     Active Substance: TOCILIZUMAB
     Dosage: 894.5 MG
     Route: 042
     Dates: start: 20140515, end: 20140515
  6. BENADRYL [Concomitant]
     Active Substance: DIPHENHYDRAMINE HYDROCHLORIDE
     Dosage: AT THE TIME OF INFUSION ONLY
     Route: 065
  7. FUROSEMIDE. [Concomitant]
     Active Substance: FUROSEMIDE
  8. ACTEMRA [Suspect]
     Active Substance: TOCILIZUMAB
     Route: 042
     Dates: start: 20140301
  9. METHOTREXATE [Concomitant]
     Active Substance: METHOTREXATE
     Indication: RHEUMATOID ARTHRITIS
     Route: 058
  10. NABUMETONE. [Concomitant]
     Active Substance: NABUMETONE
  11. RIFAMPIN. [Concomitant]
     Active Substance: RIFAMPIN

REACTIONS (9)
  - Vomiting [Recovered/Resolved]
  - Skin exfoliation [Unknown]
  - Blister [Not Recovered/Not Resolved]
  - Oropharyngeal pain [Recovered/Resolved]
  - Fatigue [Recovered/Resolved]
  - Nausea [Recovered/Resolved]
  - Helicobacter infection [Not Recovered/Not Resolved]
  - Burns second degree [Unknown]
  - Drug dose omission [Unknown]

NARRATIVE: CASE EVENT DATE: 201403
